FAERS Safety Report 12687568 (Version 1)
Quarter: 2016Q3

REPORT INFORMATION
  Report Type: Spontaneous
  Country: DK (occurrence: DE)
  Receive Date: 20160825
  Receipt Date: 20160825
  Transmission Date: 20161109
  Serious: Yes (Death)
  Sender: FDA-Public Use
  Company Number: DE-FRI-1000087011

PATIENT
  Age: 32 Year
  Sex: Male

DRUGS (1)
  1. ESCITALOPRAM [Suspect]
     Active Substance: ESCITALOPRAM OXALATE
     Indication: DEPRESSION
     Route: 048
     Dates: start: 20160707, end: 20160724

REACTIONS (3)
  - Asphyxia [Fatal]
  - Agitation [Unknown]
  - Completed suicide [Fatal]

NARRATIVE: CASE EVENT DATE: 20160724
